FAERS Safety Report 5952310-4 (Version None)
Quarter: 2008Q4

REPORT INFORMATION
  Report Type: 
  Country: None (occurrence: None)
  Receive Date: 20081113
  Receipt Date: 20081103
  Transmission Date: 20090506
  Serious: Yes (Hospitalization)
  Sender: FDA-Public Use
  Company Number: GB-WATSON-2008-06497

PATIENT
  Age: 11 Year
  Sex: Male

DRUGS (1)
  1. FIORICET [Suspect]
     Indication: NASOPHARYNGITIS
     Dosage: 500 MG, Q6-8H
     Route: 048

REACTIONS (4)
  - METABOLIC ACIDOSIS [None]
  - RENAL IMPAIRMENT [None]
  - TRANSAMINASES INCREASED [None]
  - URINE AMINO ACID LEVEL INCREASED [None]
